FAERS Safety Report 18716695 (Version 1)
Quarter: 2021Q1

REPORT INFORMATION
  Report Type: Spontaneous
  Country: US (occurrence: US)
  Receive Date: 20210107
  Receipt Date: 20210107
  Transmission Date: 20210419
  Serious: No
  Sender: FDA-Public Use
  Company Number: None

PATIENT
  Age: 32 Year
  Sex: Male
  Weight: 70.31 kg

DRUGS (3)
  1. CITALOPRAM (CITALOPRAM HYDROBROMIDE 20MG TAB) [Suspect]
     Active Substance: CITALOPRAM HYDROBROMIDE
     Indication: DEPRESSION
     Route: 048
     Dates: start: 20190528, end: 20190722
  2. CITALOPRAM (CITALOPRAM HYDROBROMIDE 20MG TAB) [Suspect]
     Active Substance: CITALOPRAM HYDROBROMIDE
     Indication: POST-TRAUMATIC STRESS DISORDER
     Route: 048
     Dates: start: 20190528, end: 20190722
  3. CITALOPRAM (CITALOPRAM HYDROBROMIDE 20MG TAB) [Suspect]
     Active Substance: CITALOPRAM HYDROBROMIDE
     Indication: ANXIETY
     Route: 048
     Dates: start: 20190528, end: 20190722

REACTIONS (3)
  - Suicide attempt [None]
  - Loss of consciousness [None]
  - Overdose [None]

NARRATIVE: CASE EVENT DATE: 20191009
